FAERS Safety Report 26080169 (Version 1)
Quarter: 2025Q4

REPORT INFORMATION
  Report Type: Spontaneous
  Country: IN (occurrence: IN)
  Receive Date: 20251124
  Receipt Date: 20251124
  Transmission Date: 20260119
  Serious: No
  Sender: ALKEM
  Company Number: IN-ALKEM LABORATORIES LIMITED-IN-ALKEM-2025-00624

PATIENT
  Age: 4 Decade
  Sex: Female
  Weight: 40 kg

DRUGS (6)
  1. ISONIAZID [Interacting]
     Active Substance: ISONIAZID
     Indication: Pulmonary tuberculosis
     Dosage: 300 MILLIGRAM, QD
     Route: 065
  2. ISONIAZID [Interacting]
     Active Substance: ISONIAZID
     Dosage: 200 MILLIGRAM, QD
     Route: 065
  3. ETHAMBUTOL [Interacting]
     Active Substance: ETHAMBUTOL HYDROCHLORIDE
     Indication: Pulmonary tuberculosis
     Dosage: 800 MILLIGRAM, QD
     Route: 065
  4. PHENYTOIN [Interacting]
     Active Substance: PHENYTOIN
     Indication: Seizure
     Dosage: 100 MILLIGRAM, TID
     Route: 065
  5. PYRAZINAMIDE [Interacting]
     Active Substance: PYRAZINAMIDE
     Indication: Pulmonary tuberculosis
     Dosage: 1200 MILLIGRAM, QD
     Route: 065
  6. RIFAMPIN [Interacting]
     Active Substance: RIFAMPIN
     Indication: Pulmonary tuberculosis
     Dosage: 600 MILLIGRAM, QD
     Route: 065

REACTIONS (6)
  - Hyperreflexia [Unknown]
  - Balance disorder [Unknown]
  - Psychotic disorder [Unknown]
  - Nystagmus [Unknown]
  - Stupor [Unknown]
  - Drug interaction [Unknown]
